FAERS Safety Report 10239373 (Version 1)
Quarter: 2014Q2

REPORT INFORMATION
  Report Type: Spontaneous
  Country: US (occurrence: US)
  Receive Date: 20140616
  Receipt Date: 20140616
  Transmission Date: 20141212
  Serious: No
  Sender: FDA-Public Use
  Company Number: US-ABBVIE-14P-163-1230905-00

PATIENT
  Age: 45 Year
  Sex: Female
  Weight: 67.19 kg

DRUGS (7)
  1. LUPANETA PACK [Suspect]
     Indication: UTERINE LEIOMYOMA
     Route: 030
     Dates: start: 20140322
  2. LUPANETA PACK [Suspect]
     Indication: UTERINE LEIOMYOMA
     Route: 048
     Dates: start: 20140322
  3. MULTIVITAMINS [Concomitant]
     Indication: VITAMIN SUPPLEMENTATION
  4. VITAMIN C [Concomitant]
     Indication: VITAMIN SUPPLEMENTATION
  5. CALCIUM [Concomitant]
     Indication: MINERAL SUPPLEMENTATION
  6. VITAMIN D [Concomitant]
     Indication: VITAMIN SUPPLEMENTATION
  7. SEMPREX-D [Concomitant]
     Indication: HYPERSENSITIVITY

REACTIONS (3)
  - Off label use [Not Recovered/Not Resolved]
  - Metrorrhagia [Not Recovered/Not Resolved]
  - Abdominal pain [Not Recovered/Not Resolved]
